FAERS Safety Report 24846754 (Version 1)
Quarter: 2025Q1

REPORT INFORMATION
  Report Type: Spontaneous
  Country: NL (occurrence: NL)
  Receive Date: 20250115
  Receipt Date: 20250115
  Transmission Date: 20250408
  Serious: Yes (Other)
  Sender: FRESENIUS KABI
  Company Number: NL-SCD-014492

PATIENT
  Age: 79 Year
  Sex: Female

DRUGS (2)
  1. ACETAMINOPHEN [Suspect]
     Active Substance: ACETAMINOPHEN
     Indication: Product used for unknown indication
  2. MEPHENESIN [Suspect]
     Active Substance: MEPHENESIN
     Indication: Product used for unknown indication

REACTIONS (1)
  - Hallucination, auditory [Unknown]
